FAERS Safety Report 22020280 (Version 1)
Quarter: 2023Q1

REPORT INFORMATION
  Report Type: Spontaneous
  Country: US (occurrence: None)
  Receive Date: 20230217
  Receipt Date: 20230217
  Transmission Date: 20230418
  Serious: Yes (Other)
  Sender: FDA-Public Use
  Company Number: None

PATIENT
  Age: 13 Year
  Sex: Male
  Weight: 80.92 kg

DRUGS (1)
  1. RISPERIDONE [Suspect]
     Active Substance: RISPERIDONE
     Indication: Autism spectrum disorder
     Dosage: RESPIDRONE 1 MG 1 TAB PO BID?
     Route: 048
     Dates: start: 20220922, end: 20230214

REACTIONS (2)
  - Aggression [None]
  - Behaviour disorder [None]

NARRATIVE: CASE EVENT DATE: 20220922
